FAERS Safety Report 22622162 (Version 1)
Quarter: 2023Q2

REPORT INFORMATION
  Report Type: Spontaneous
  Country: IT (occurrence: IT)
  Receive Date: 20230620
  Receipt Date: 20230620
  Transmission Date: 20230721
  Serious: Yes (Life-Threatening, Other)
  Sender: FDA-Public Use
  Company Number: None

PATIENT
  Age: 76 Year
  Sex: Male
  Weight: 65 kg

DRUGS (7)
  1. RUXIENCE [Suspect]
     Active Substance: RITUXIMAB-PVVR
     Indication: Chemotherapy
     Dosage: 675 MG DILUTED IN PHYSIOLOGICAL SOLUTION 500 ML
     Route: 042
     Dates: start: 20230223, end: 20230223
  2. RUXIENCE [Suspect]
     Active Substance: RITUXIMAB-PVVR
     Indication: Lymphoplasmacytoid lymphoma/immunocytoma
  3. BORTEZOMIB DR. REDDYS [Concomitant]
     Indication: Chemotherapy
     Dosage: 2.34 MG
     Route: 058
     Dates: start: 20230223, end: 20230223
  4. BORTEZOMIB DR. REDDYS [Concomitant]
     Indication: Lymphoplasmacytoid lymphoma/immunocytoma
  5. TRIMETON [Concomitant]
     Active Substance: CHLORPHENIRAMINE MALEATE
     Indication: Premedication
     Dosage: 10 MG DILUTED IN PHYSIOLOGICAL SOLUTION 100 ML
     Route: 042
     Dates: start: 20230223, end: 20230223
  6. ACETAMINOPHEN [Concomitant]
     Active Substance: ACETAMINOPHEN
     Indication: Premedication
     Dosage: 1000 MG
     Route: 048
     Dates: start: 20230223, end: 20230223
  7. METHYLPREDNISOLONE [Concomitant]
     Active Substance: METHYLPREDNISOLONE
     Indication: Premedication
     Dosage: 40 MG DILUTED IN SALINE SOLUTION 100 ML
     Route: 042
     Dates: start: 20230223, end: 20230223

REACTIONS (4)
  - Loss of consciousness [Recovered/Resolved]
  - Drug hypersensitivity [Recovered/Resolved]
  - Tremor [Recovered/Resolved]
  - Hypotension [Recovered/Resolved]

NARRATIVE: CASE EVENT DATE: 20230223
